FAERS Safety Report 7688837-7 (Version None)
Quarter: 2011Q3

REPORT INFORMATION
  Report Type: 
  Country: None (occurrence: None)
  Receive Date: 20110817
  Receipt Date: 20110808
  Transmission Date: 20111222
  Serious: Yes (Hospitalization)
  Sender: FDA-Public Use
  Company Number: PHHO2011FR13105

PATIENT
  Sex: Male
  Weight: 97 kg

DRUGS (15)
  1. NEORAL [Suspect]
     Indication: RENAL TRANSPLANT
     Dosage: 500 MG, UNK
     Route: 048
     Dates: start: 20110716, end: 20110721
  2. SIMULECT [Concomitant]
     Indication: RENAL TRANSPLANT
     Dosage: UNK
  3. LASIX [Concomitant]
     Dosage: 125 MG, UNK
     Route: 048
     Dates: start: 20110723, end: 20110723
  4. NEORAL [Suspect]
     Dosage: 400 MG, UNK
     Route: 048
     Dates: start: 20110723
  5. CELLCEPT [Concomitant]
     Dosage: 3 G, UNK
     Route: 048
     Dates: start: 20110710
  6. VALGANCICLOVIR [Concomitant]
  7. ATORVASTATIN CALCIUM [Concomitant]
     Dosage: 10 MG, UNK
     Route: 048
     Dates: start: 20110709
  8. ATENOLOL [Concomitant]
     Dosage: 25 MG, UNK
     Route: 048
     Dates: start: 20110708
  9. NEORAL [Suspect]
     Dosage: 450 MG, UNK
     Route: 048
     Dates: start: 20110722, end: 20110722
  10. LASIX [Concomitant]
     Dosage: 40 MG, UNK
     Route: 048
     Dates: start: 20110726
  11. EPREX [Concomitant]
     Dosage: 10000 IU, UNK
     Dates: start: 20110711
  12. SOLU-MEDROL [Concomitant]
     Indication: RENAL TRANSPLANT
     Dosage: UNK
  13. PREDNISOLONE [Concomitant]
     Dosage: 10 MG, UNK
     Route: 048
     Dates: start: 20110723
  14. ASPIRIN [Concomitant]
     Dosage: 75 MG, UNK
     Route: 048
     Dates: start: 20110706, end: 20110721
  15. ALFUZOSIN HCL [Concomitant]
     Dosage: 10 MG, UNK
     Dates: start: 20110718

REACTIONS (3)
  - ACUTE PRERENAL FAILURE [None]
  - OVERDOSE [None]
  - IMMUNOSUPPRESSANT DRUG LEVEL INCREASED [None]
